FAERS Safety Report 8732448 (Version 2)
Quarter: 2015Q2

REPORT INFORMATION
  Report Type: Report from Study
  Country: US (occurrence: US)
  Receive Date: 20120820
  Receipt Date: 20150629
  Transmission Date: 20150821
  Serious: Yes (Hospitalization, Other)
  Sender: FDA-Public Use
  Company Number: US-ROCHE-1098743

PATIENT
  Sex: Male

DRUGS (12)
  1. PRONESTYL [Concomitant]
     Active Substance: PROCAINAMIDE HYDROCHLORIDE
     Route: 048
  2. ASPIRIN. [Concomitant]
     Active Substance: ASPIRIN
     Route: 048
  3. ZANTAC [Concomitant]
     Active Substance: RANITIDINE HYDROCHLORIDE
     Route: 048
  4. ACTIVASE [Suspect]
     Active Substance: ALTEPLASE
     Indication: MYOCARDIAL INFARCTION
     Route: 042
  5. LOPRESSOR [Concomitant]
     Active Substance: METOPROLOL TARTRATE
     Route: 048
  6. CARDIZEM [Concomitant]
     Active Substance: DILTIAZEM HYDROCHLORIDE
  7. HEPARIN [Concomitant]
     Active Substance: HEPARIN SODIUM
  8. PROCAN SR [Concomitant]
     Route: 048
  9. LOPRESSOR [Concomitant]
     Active Substance: METOPROLOL TARTRATE
     Route: 048
  10. LANOXIN [Concomitant]
     Active Substance: DIGOXIN
     Route: 048
  11. TRIDIL [Concomitant]
     Active Substance: NITROGLYCERIN
     Route: 065
  12. LIDOCAINE. [Concomitant]
     Active Substance: LIDOCAINE

REACTIONS (9)
  - Ventricular hypokinesia [Unknown]
  - Atrial flutter [Unknown]
  - Ventricular tachycardia [Unknown]
  - Atrioventricular block first degree [Unknown]
  - Coronary artery occlusion [Unknown]
  - Tricuspid valve incompetence [Unknown]
  - Blood creatine phosphokinase increased [Unknown]
  - Chest pain [Recovered/Resolved]
  - Atrial fibrillation [Unknown]

NARRATIVE: CASE EVENT DATE: 19930825
